FAERS Safety Report 10965056 (Version 1)
Quarter: 2015Q1

REPORT INFORMATION
  Report Type: Spontaneous
  Country: US (occurrence: US)
  Receive Date: 20150330
  Receipt Date: 20150330
  Transmission Date: 20150721
  Serious: Yes (Hospitalization)
  Sender: FDA-Public Use
  Company Number: US-BEH-2015049858

PATIENT
  Sex: Female
  Weight: 55.3 kg

DRUGS (16)
  1. EPIPEN [Concomitant]
     Active Substance: EPINEPHRINE
  2. PRIVIGEN [Suspect]
     Active Substance: HUMAN IMMUNOGLOBULIN G
     Indication: HYPOGLOBULINAEMIA
     Dosage: 20 GM VIAL; DOSING PERIOD 02-MAR-2015 TO 29-MAR-2015
     Route: 042
  3. FOSAMAX [Concomitant]
     Active Substance: ALENDRONATE SODIUM
  4. DIOVAN [Concomitant]
     Active Substance: VALSARTAN
  5. BIOTIN [Concomitant]
     Active Substance: BIOTIN
  6. SODIUM CHLORIDE. [Concomitant]
     Active Substance: SODIUM CHLORIDE
  7. ATENOLOL. [Concomitant]
     Active Substance: ATENOLOL
  8. VITAMIN D [Concomitant]
     Active Substance: CHOLECALCIFEROL
  9. NORMAL SALINE [Concomitant]
     Active Substance: SODIUM CHLORIDE
  10. LOPERAMIDE [Concomitant]
     Active Substance: LOPERAMIDE
  11. PRIVIGEN [Suspect]
     Active Substance: HUMAN IMMUNOGLOBULIN G
     Indication: SELECTIVE IGG SUBCLASS DEFICIENCY
     Dosage: 20 GM VIAL; DOSING PERIOD 02-MAR-2015 TO 29-MAR-2015
     Route: 042
  12. SYMBICORT [Concomitant]
     Active Substance: BUDESONIDE\FORMOTEROL FUMARATE DIHYDRATE
  13. SYNTHROID [Concomitant]
     Active Substance: LEVOTHYROXINE SODIUM
  14. FOLIC ACID. [Concomitant]
     Active Substance: FOLIC ACID
  15. CALCIUM [Concomitant]
     Active Substance: CALCIUM
  16. VITAMIN C [Concomitant]
     Active Substance: ASCORBIC ACID

REACTIONS (1)
  - Hospitalisation [Unknown]
